FAERS Safety Report 7436835-0 (Version None)
Quarter: 2011Q2

REPORT INFORMATION
  Report Type: 
  Country: None (occurrence: None)
  Receive Date: 20110426
  Receipt Date: 20101228
  Transmission Date: 20111010
  Serious: Yes (Hospitalization, Other)
  Sender: FDA-Public Use
  Company Number: US-BAYER-201036733NA

PATIENT
  Age: 16 Year
  Sex: Female
  Weight: 63.039 kg

DRUGS (8)
  1. YASMIN [Suspect]
     Route: 048
     Dates: start: 20030101, end: 20100101
  2. RELAFEN [Concomitant]
     Dosage: 750 MG, BID
     Route: 048
  3. VICODIN [Concomitant]
     Dosage: 5/500 AS NEEDED
     Route: 048
  4. IBUPROFEN [Concomitant]
  5. OCELLA [Suspect]
  6. TRAZODONE [Concomitant]
     Dosage: ^HS^ AS NEEDED
     Route: 048
  7. VIOXX [Concomitant]
  8. NAPROXEN [Concomitant]

REACTIONS (4)
  - CHOLELITHIASIS [None]
  - CHOLECYSTECTOMY [None]
  - ABDOMINAL PAIN UPPER [None]
  - CHOLECYSTITIS CHRONIC [None]
